FAERS Safety Report 4332717-1 (Version None)
Quarter: 2004Q1

REPORT INFORMATION
  Report Type: 
  Country: None (occurrence: None)
  Receive Date: 20040330
  Receipt Date: 20040315
  Transmission Date: 20041129
  Serious: Yes (Hospitalization)
  Sender: FDA-Public Use
  Company Number: STA-AE-04-MTX-020

PATIENT
  Age: 45 Year
  Sex: Female

DRUGS (6)
  1. METHOTREXATE [Suspect]
     Indication: RHEUMATOID ARTHRITIS
     Dosage: 7.5 MG 1X PER 1 WK; ORAL
     Route: 048
     Dates: start: 19970129, end: 20031112
  2. ENBREL [Suspect]
     Indication: RHEUMATOID ARTHRITIS
     Dosage: 25 MG 2X PER 1WK; SC
     Route: 058
     Dates: start: 20030205, end: 20031112
  3. PREDNISONE [Concomitant]
  4. ACTONEL [Concomitant]
  5. VIOXX [Concomitant]
  6. ULTRAM [Concomitant]

REACTIONS (5)
  - BRONCHITIS HAEMOPHILUS [None]
  - CHRONIC OBSTRUCTIVE AIRWAYS DISEASE EXACERBATED [None]
  - PNEUMONIA [None]
  - RESPIRATORY ACIDOSIS [None]
  - SUBCUTANEOUS ABSCESS [None]
